FAERS Safety Report 13428278 (Version 1)
Quarter: 2017Q2

REPORT INFORMATION
  Report Type: Report from Study
  Country: US (occurrence: US)
  Receive Date: 20170411
  Receipt Date: 20170411
  Transmission Date: 20170830
  Serious: Yes (Other)
  Sender: FDA-Public Use
  Company Number: US-JNJFOC-20170221758

PATIENT
  Age: 87 Year
  Sex: Male

DRUGS (16)
  1. FOLIC ACID. [Concomitant]
     Active Substance: FOLIC ACID
  2. UBIDECARENONE [Concomitant]
     Active Substance: UBIDECARENONE
  3. FLUTICASONE PROPIONATE W/SALMETEROL XINAFOATE [Concomitant]
     Active Substance: FLUTICASONE PROPIONATE\SALMETEROL XINAFOATE
  4. LIDEX [Concomitant]
     Active Substance: FLUOCINONIDE
  5. IMBRUVICA [Suspect]
     Active Substance: IBRUTINIB
     Indication: CHRONIC LYMPHOCYTIC LEUKAEMIA
     Route: 048
     Dates: start: 20170314
  6. ATROVENT [Concomitant]
     Active Substance: IPRATROPIUM BROMIDE
  7. IMBRUVICA [Suspect]
     Active Substance: IBRUTINIB
     Indication: CHRONIC LYMPHOCYTIC LEUKAEMIA
     Route: 048
     Dates: start: 20170215
  8. METOPROLOL SUCCINATE. [Concomitant]
     Active Substance: METOPROLOL SUCCINATE
  9. IMDUR [Concomitant]
     Active Substance: ISOSORBIDE MONONITRATE
  10. IMBRUVICA [Suspect]
     Active Substance: IBRUTINIB
     Indication: CHRONIC LYMPHOCYTIC LEUKAEMIA
     Route: 048
     Dates: start: 20170213
  11. NIACINAMIDE [Concomitant]
     Active Substance: NIACINAMIDE
  12. NITROGLYCERIN. [Concomitant]
     Active Substance: NITROGLYCERIN
  13. VITAMIN C [Concomitant]
     Active Substance: ASCORBIC ACID
  14. COZAAR [Concomitant]
     Active Substance: LOSARTAN POTASSIUM
  15. LASIX [Concomitant]
     Active Substance: FUROSEMIDE
  16. WARFARIN [Concomitant]
     Active Substance: WARFARIN

REACTIONS (5)
  - Haemorrhage [Unknown]
  - Post procedural haemorrhage [Unknown]
  - Arthralgia [Unknown]
  - Surgery [Unknown]
  - Diarrhoea [Recovered/Resolved]

NARRATIVE: CASE EVENT DATE: 20170215
